FAERS Safety Report 23266081 (Version 1)
Quarter: 2023Q4

REPORT INFORMATION
  Report Type: Other
  Country: GB (occurrence: GB)
  Receive Date: 20231206
  Receipt Date: 20231206
  Transmission Date: 20240110
  Serious: Yes (Other)
  Sender: FDA-Public Use
  Company Number: GB-MACLEODS PHARMACEUTICALS US LTD-MAC2023044613

PATIENT

DRUGS (1)
  1. ESCITALOPRAM [Suspect]
     Active Substance: ESCITALOPRAM OXALATE
     Indication: Anxiety
     Dosage: 10 MILLIGRAM, QD (CAPSULE)
     Route: 065

REACTIONS (4)
  - Female orgasmic disorder [Recovering/Resolving]
  - Psychosexual disorder [Recovering/Resolving]
  - Psychosexual disorder [Recovering/Resolving]
  - Medication error [Unknown]
